FAERS Safety Report 6765633-6 (Version None)
Quarter: 2010Q2

REPORT INFORMATION
  Report Type: 
  Country: None (occurrence: None)
  Receive Date: 20100611
  Receipt Date: 20100602
  Transmission Date: 20101027
  Serious: Yes (Other)
  Sender: FDA-Public Use
  Company Number: CA-NAPPMUNDI-CAN-2010-0001394

PATIENT
  Age: 28 Year
  Sex: Male

DRUGS (4)
  1. DILAUDID [Suspect]
     Indication: DRUG USE FOR UNKNOWN INDICATION
     Dosage: 4 MG, PRN
     Route: 065
  2. BIAXIN [Suspect]
     Indication: DRUG USE FOR UNKNOWN INDICATION
     Dosage: 1000 MG, DAILY
     Route: 065
  3. CYCLOBENZAPRINE [Concomitant]
     Indication: DRUG USE FOR UNKNOWN INDICATION
     Route: 065
  4. NEXIUM [Concomitant]
     Indication: DRUG USE FOR UNKNOWN INDICATION
     Route: 065

REACTIONS (8)
  - ANXIETY [None]
  - CONFUSIONAL STATE [None]
  - CRYING [None]
  - DELUSION [None]
  - FEELING ABNORMAL [None]
  - FEELING HOT [None]
  - NERVOUSNESS [None]
  - SLEEP DISORDER [None]
